FAERS Safety Report 8772556 (Version 2)
Quarter: 2012Q4

REPORT INFORMATION
  Report Type: 
  Country: CN (occurrence: CN)
  Receive Date: 20120905
  Receipt Date: 20121012
  Transmission Date: 20130627
  Serious: Yes (Hospitalization, Other)
  Sender: FDA-Public Use
  Company Number: CN-ROCHE-1008621

PATIENT
  Age: 68 Year
  Sex: Male

DRUGS (6)
  1. ROCEPHIN [Suspect]
     Indication: MALIGNANT MELANOMA
     Route: 065
     Dates: start: 20110413
  2. IPILIMUMAB [Suspect]
     Indication: MALIGNANT MELANOMA
     Route: 042
     Dates: start: 20110124
  3. LANTUS [Concomitant]
     Route: 065
     Dates: start: 2005
  4. MARCOUMAR [Concomitant]
     Route: 065
     Dates: start: 20101210
  5. HUMALOG [Concomitant]
     Route: 065
     Dates: start: 2005
  6. DIFLUCAN [Concomitant]
     Route: 065
     Dates: start: 20110410, end: 20110411

REACTIONS (6)
  - Hepatitis [Unknown]
  - Alanine aminotransferase increased [Recovered/Resolved]
  - Aspartate aminotransferase increased [Recovered/Resolved]
  - Secondary adrenocortical insufficiency [Unknown]
  - Cystitis [Unknown]
  - Laryngitis [Unknown]
